FAERS Safety Report 13161923 (Version 1)
Quarter: 2017Q1

REPORT INFORMATION
  Report Type: Spontaneous
  Country: BE (occurrence: BE)
  Receive Date: 20170130
  Receipt Date: 20170130
  Transmission Date: 20170428
  Serious: Yes (Other)
  Sender: FDA-Public Use
  Company Number: BE-ROCHE-1886089

PATIENT
  Age: 74 Year
  Sex: Female
  Weight: 60.5 kg

DRUGS (6)
  1. REBETOL [Suspect]
     Active Substance: RIBAVIRIN
     Route: 065
     Dates: start: 2010
  2. REBETOL [Suspect]
     Active Substance: RIBAVIRIN
     Indication: HEPATITIS C
     Route: 065
     Dates: start: 20050928
  3. PEGINTRON [Suspect]
     Active Substance: PEGINTERFERON ALFA-2B
     Route: 065
     Dates: start: 2010
  4. SOVALDI [Suspect]
     Active Substance: SOFOSBUVIR
     Indication: HEPATITIS C
     Route: 065
     Dates: start: 201501
  5. COPEGUS [Suspect]
     Active Substance: RIBAVIRIN
     Indication: HEPATITIS C
     Route: 065
     Dates: start: 201501
  6. PEGINTRON [Suspect]
     Active Substance: PEGINTERFERON ALFA-2B
     Indication: HEPATITIS C
     Route: 065
     Dates: start: 20050928

REACTIONS (3)
  - Acute kidney injury [Recovered/Resolved]
  - Disease recurrence [Recovered/Resolved]
  - Vasculitis [Recovering/Resolving]

NARRATIVE: CASE EVENT DATE: 201410
